FAERS Safety Report 5065215-0 (Version None)
Quarter: 2006Q3

REPORT INFORMATION
  Report Type: 
  Country: None (occurrence: None)
  Receive Date: 20060703
  Receipt Date: 20060411
  Transmission Date: 20061208
  Serious: Yes (Hospitalization)
  Sender: FDA-Public Use
  Company Number: 2006-0009443

PATIENT
  Age: 73 Year
  Sex: Female
  Weight: 42.1845 kg

DRUGS (9)
  1. VIREAD [Suspect]
     Indication: HIV INFECTION
     Dosage: 300 MG, 1 IN 1 D, ORAL
     Route: 048
     Dates: start: 20030504, end: 20050920
  2. RITONAVIR (RITONAVIR) [Concomitant]
  3. ATAZANAVIR SULFATE (ATAZANAVIR SULFATE) [Concomitant]
  4. LAMIVUDINE [Concomitant]
  5. ATENOLOL [Concomitant]
  6. ECOTRIN (ACETYSALICYLIC ACID) [Concomitant]
  7. PREVACID [Concomitant]
  8. OS-CAL(OS-CAL) [Concomitant]
  9. FOSAMAX [Concomitant]

REACTIONS (1)
  - FANCONI SYNDROME [None]
